FAERS Safety Report 16238737 (Version 21)
Quarter: 2022Q2

REPORT INFORMATION
  Report Type: Report from Study
  Country: GB (occurrence: GB)
  Receive Date: 20190425
  Receipt Date: 20220622
  Transmission Date: 20220720
  Serious: Yes (Congenital Anomaly, Other)
  Sender: FDA-Public Use
  Company Number: GB-AUROBINDO-AUR-APL-2019-021895

PATIENT

DRUGS (4)
  1. EDURANT [Suspect]
     Active Substance: RILPIVIRINE HYDROCHLORIDE
     Indication: HIV infection
     Dosage: MOTHER^S DOSING
     Route: 064
     Dates: start: 20170601
  2. EDURANT [Suspect]
     Active Substance: RILPIVIRINE HYDROCHLORIDE
     Route: 064
     Dates: start: 20171214
  3. ABACAVIR\LAMIVUDINE [Suspect]
     Active Substance: ABACAVIR\LAMIVUDINE
     Indication: HIV infection
     Dosage: MOTHER^S DOSING 1 DF, QD
     Route: 064
     Dates: start: 20170601
  4. ABACAVIR\LAMIVUDINE [Suspect]
     Active Substance: ABACAVIR\LAMIVUDINE
     Indication: Antiviral treatment
     Dosage: 1 DF, QD,1 DOSAGE FORMS DAILY
     Route: 064
     Dates: start: 20171214

REACTIONS (4)
  - Congenital pyelocaliectasis [Unknown]
  - Congenital hydronephrosis [Unknown]
  - Foetal exposure during pregnancy [Recovered/Resolved]
  - Pyelocaliectasis [Unknown]

NARRATIVE: CASE EVENT DATE: 20171214
